FAERS Safety Report 7492946-5 (Version None)
Quarter: 2011Q2

REPORT INFORMATION
  Report Type: 
  Country: None (occurrence: None)
  Receive Date: 20110520
  Receipt Date: 20110517
  Transmission Date: 20111010
  Serious: Yes (Other)
  Sender: FDA-Public Use
  Company Number: US-BRISTOL-MYERS SQUIBB COMPANY-15751472

PATIENT
  Age: 67 Year
  Sex: Female

DRUGS (1)
  1. ABILIFY [Suspect]
     Indication: MAJOR DEPRESSION
     Dosage: FINISHED 1 1/2 WEEKS OF THERAPY

REACTIONS (1)
  - THINKING ABNORMAL [None]
